FAERS Safety Report 12185090 (Version 1)
Quarter: 2016Q1

REPORT INFORMATION
  Report Type: Spontaneous
  Country: DE (occurrence: DE)
  Receive Date: 20160316
  Receipt Date: 20160316
  Transmission Date: 20160526
  Serious: Yes (Disabling)
  Sender: FDA-Public Use
  Company Number: DE-SA-2016SA035792

PATIENT
  Sex: Male

DRUGS (1)
  1. RHINISAN [Suspect]
     Active Substance: TRIAMCINOLONE ACETONIDE
     Indication: PHARYNGITIS
     Dosage: START DATE 10 YEARS AGO DOSE:1 PUFF(S)
     Route: 045
     Dates: start: 2003

REACTIONS (1)
  - Aphasia [Unknown]
